FAERS Safety Report 17893823 (Version 2)
Quarter: 2020Q4

REPORT INFORMATION
  Report Type: Spontaneous
  Country: DE (occurrence: DE)
  Receive Date: 20200615
  Receipt Date: 20201027
  Transmission Date: 20210113
  Serious: Yes (Hospitalization, Other)
  Sender: FDA-Public Use
  Company Number: DE-AUROBINDO-AUR-APL-2020-028652

PATIENT
  Age: 26 Year
  Sex: Female

DRUGS (3)
  1. DEKRISTOL [Concomitant]
     Active Substance: CHOLECALCIFEROL
     Indication: PRODUCT USED FOR UNKNOWN INDICATION
     Dosage: UNK
     Route: 065
  2. PIPERACILLIN AND TAZOBACTAM [Suspect]
     Active Substance: PIPERACILLIN SODIUM\TAZOBACTAM SODIUM
     Indication: PNEUMONIA
     Dosage: 4.5 GRAM
     Route: 042
     Dates: start: 20180806, end: 20180808
  3. IMMUNGLOBULIN [Concomitant]
     Active Substance: HUMAN IMMUNOGLOBULIN G
     Indication: PRODUCT USED FOR UNKNOWN INDICATION
     Dosage: UNK
     Route: 065

REACTIONS (15)
  - Hepatotoxicity [Recovered/Resolved]
  - Chromaturia [Recovered/Resolved]
  - Pruritus [Recovered/Resolved]
  - Malaise [Recovered/Resolved]
  - Back pain [Recovered/Resolved]
  - Decreased appetite [Recovered/Resolved]
  - Asthenia [Recovered/Resolved]
  - Circulatory collapse [Recovered/Resolved]
  - Transaminases increased [Recovered/Resolved]
  - Sleep disorder [Recovered/Resolved]
  - Abdominal discomfort [Recovered/Resolved]
  - Constipation [Recovered/Resolved]
  - Sedation [Recovered/Resolved]
  - Faeces discoloured [Recovered/Resolved]
  - Rash [Recovered/Resolved]

NARRATIVE: CASE EVENT DATE: 20180807
